FAERS Safety Report 10709350 (Version 2)
Quarter: 2015Q2

REPORT INFORMATION
  Report Type: Report from Study
  Country: AU (occurrence: AU)
  Receive Date: 20150114
  Receipt Date: 20150430
  Transmission Date: 20150821
  Serious: Yes (Hospitalization)
  Sender: FDA-Public Use
  Company Number: AU-BRISTOL-MYERS SQUIBB COMPANY-BMS-2014-007219

PATIENT
  Age: 34 Year
  Sex: Female
  Weight: 99 kg

DRUGS (1)
  1. IPILIMUMAB [Suspect]
     Active Substance: IPILIMUMAB
     Indication: METASTATIC MALIGNANT MELANOMA
     Dosage: 3 MG/KG, Q2WK
     Route: 042
     Dates: start: 20141022, end: 20141112

REACTIONS (2)
  - Colitis [Recovering/Resolving]
  - Gastrointestinal ulcer [Recovering/Resolving]

NARRATIVE: CASE EVENT DATE: 20141130
